FAERS Safety Report 20948773 (Version 8)
Quarter: 2022Q3

REPORT INFORMATION
  Report Type: Spontaneous
  Country: NL (occurrence: NL)
  Receive Date: 20220612
  Receipt Date: 20220920
  Transmission Date: 20221027
  Serious: Yes (Hospitalization, Other)
  Sender: FDA-Public Use
  Company Number: NL-NOVARTISPH-NVSC2022NL129981

PATIENT

DRUGS (4)
  1. TOBRAMYCIN [Suspect]
     Active Substance: TOBRAMYCIN
     Indication: Product used for unknown indication
     Dosage: UNK
     Route: 065
  2. MEROPENEM [Suspect]
     Active Substance: MEROPENEM
     Indication: Product used for unknown indication
     Dosage: UNK
     Route: 065
  3. ALGLUCOSIDASE ALFA [Suspect]
     Active Substance: ALGLUCOSIDASE ALFA
     Indication: Glycogen storage disease type II
     Dosage: UNK (60 MINUTES 7.8 ML/HOUR; 60 MINUTES 23.2 ML/HOUR; 30 MINUTES 106.4 ML/HOUR; REST MINUTES 500 ML/
     Route: 042
     Dates: start: 20070330
  4. MYOZYME [Concomitant]
     Active Substance: ALGLUCOSIDASE ALFA
     Indication: Product used for unknown indication
     Dosage: UNK
     Route: 065

REACTIONS (17)
  - Respiratory tract infection [Recovered/Resolved]
  - Pneumonia [Recovering/Resolving]
  - Secretion discharge [Not Recovered/Not Resolved]
  - Condition aggravated [Recovering/Resolving]
  - Respiratory tract infection bacterial [Recovering/Resolving]
  - Respiratory tract infection viral [Recovering/Resolving]
  - Bronchial secretion retention [Not Recovered/Not Resolved]
  - Pyrexia [Recovering/Resolving]
  - Dependence on respirator [Recovering/Resolving]
  - Oxygen saturation decreased [Recovering/Resolving]
  - Erythema [Recovering/Resolving]
  - Pharyngeal erythema [Recovering/Resolving]
  - Oropharyngeal pain [Recovering/Resolving]
  - Upper respiratory tract inflammation [Recovering/Resolving]
  - Dyspnoea [Recovering/Resolving]
  - Disease progression [Unknown]
  - Sense of oppression [Recovering/Resolving]

NARRATIVE: CASE EVENT DATE: 20210916
